FAERS Safety Report 9025150 (Version 1)
Quarter: 2013Q1

REPORT INFORMATION
  Report Type: Spontaneous
  Country: IN (occurrence: IN)
  Receive Date: 20130122
  Receipt Date: 20130122
  Transmission Date: 20140127
  Serious: Yes (Other)
  Sender: FDA-Public Use
  Company Number: PHHY2013IN005260

PATIENT
  Age: 11 Year
  Sex: Male

DRUGS (1)
  1. CICLOSPORIN [Suspect]
     Indication: LANGERHANS^ CELL HISTIOCYTOSIS
     Dosage: 12 MG/KG, QD

REACTIONS (5)
  - Bile duct stone [Unknown]
  - Ocular icterus [Unknown]
  - Hepatosplenomegaly [Unknown]
  - Tenderness [Unknown]
  - Varices oesophageal [Unknown]
